FAERS Safety Report 10644919 (Version 2)
Quarter: 2015Q1

REPORT INFORMATION
  Report Type: Spontaneous
  Country: SI (occurrence: SI)
  Receive Date: 20141211
  Receipt Date: 20150220
  Transmission Date: 20150720
  Serious: Yes (Hospitalization, Other)
  Sender: FDA-Public Use
  Company Number: SI-AMGEN-SVNSP2014095034

PATIENT
  Age: 83 Year
  Sex: Female
  Weight: 80 kg

DRUGS (4)
  1. DEXAMETHASONE. [Concomitant]
     Active Substance: DEXAMETHASONE
     Indication: OEDEMA
  2. PLIVIT D3 [Concomitant]
     Active Substance: CHOLECALCIFEROL
     Dosage: 35 GTT, QWK
  3. XGEVA [Suspect]
     Active Substance: DENOSUMAB
     Indication: LUNG ADENOCARCINOMA
     Dosage: 120 MG, Q4WK
     Route: 058
     Dates: start: 20141110
  4. CALCIUM CALVIVE [Concomitant]
     Dosage: 4 DF, QD

REACTIONS (13)
  - Mobility decreased [Unknown]
  - EGFR gene mutation [Unknown]
  - Constipation [Unknown]
  - Immobile [Unknown]
  - Nasopharyngitis [Unknown]
  - Hypocalcaemia [Recovered/Resolved]
  - Communication disorder [Unknown]
  - Mental disorder [Unknown]
  - Hemiplegia [Unknown]
  - Disease progression [Unknown]
  - General physical health deterioration [Unknown]
  - Hyporesponsive to stimuli [Unknown]
  - Fatigue [Unknown]

NARRATIVE: CASE EVENT DATE: 20140924
